FAERS Safety Report 7586649-6 (Version None)
Quarter: 2011Q3

REPORT INFORMATION
  Report Type: 
  Country: None (occurrence: None)
  Receive Date: 20110701
  Receipt Date: 20110621
  Transmission Date: 20111222
  Serious: Yes (Other)
  Sender: FDA-Public Use
  Company Number: US-ELI_LILLY_AND_COMPANY-US201104008184

PATIENT
  Sex: Female

DRUGS (2)
  1. HUMULIN N [Suspect]
     Indication: TYPE 2 DIABETES MELLITUS
     Dosage: UNK
     Dates: end: 20010101
  2. LANTUS [Concomitant]
     Dosage: UNK

REACTIONS (7)
  - CHROMATOPSIA [None]
  - VISUAL IMPAIRMENT [None]
  - VISUAL FIELD DEFECT [None]
  - RETINAL HAEMORRHAGE [None]
  - EYE OPERATION [None]
  - BLINDNESS UNILATERAL [None]
  - BLOOD GLUCOSE FLUCTUATION [None]
